FAERS Safety Report 9285005 (Version 2)
Quarter: 2013Q2

REPORT INFORMATION
  Report Type: Spontaneous
  Country: CR (occurrence: CR)
  Receive Date: 20130513
  Receipt Date: 20130521
  Transmission Date: 20140414
  Serious: Yes (Death, Hospitalization, Other)
  Sender: FDA-Public Use
  Company Number: PHHY2013CR046817

PATIENT
  Age: 56 Year
  Sex: Female

DRUGS (3)
  1. GLIVEC [Suspect]
     Indication: ACUTE MYELOID LEUKAEMIA
     Dosage: 400 MG, Q24H
     Route: 048
  2. ARA-C [Suspect]
     Dosage: 120 MG, PER DAY
     Route: 058
  3. MERCAPTOPURINE [Suspect]
     Dosage: 100 MG, PER DAY

REACTIONS (5)
  - Hypokalaemia [Fatal]
  - Bone marrow failure [Fatal]
  - Candida infection [Recovering/Resolving]
  - Neutropenia [Unknown]
  - Pyrexia [Recovered/Resolved]
